FAERS Safety Report 9406493 (Version 1)
Quarter: 2013Q3

REPORT INFORMATION
  Report Type: Spontaneous
  Country: US (occurrence: US)
  Receive Date: 20130718
  Receipt Date: 20130718
  Transmission Date: 20140515
  Serious: Yes (Other)
  Sender: FDA-Public Use
  Company Number: US-JNJFOC-20130705046

PATIENT
  Sex: Female

DRUGS (1)
  1. BENADRYL CHILD ALLERGY LIQUID CHERRY [Suspect]
     Indication: ACCIDENTAL EXPOSURE TO PRODUCT
     Route: 048
     Dates: start: 20130705

REACTIONS (2)
  - Accidental exposure to product [Not Recovered/Not Resolved]
  - Somnolence [Not Recovered/Not Resolved]
